FAERS Safety Report 10487886 (Version 2)
Quarter: 2014Q4

REPORT INFORMATION
  Report Type: Spontaneous
  Country: IT (occurrence: IT)
  Receive Date: 20141001
  Receipt Date: 20141010
  Transmission Date: 20150528
  Serious: Yes (Other)
  Sender: FDA-Public Use
  Company Number: IT-BAXTER-2014BAX057705

PATIENT
  Age: 24 Year

DRUGS (3)
  1. HOLOXAN [Suspect]
     Active Substance: IFOSFAMIDE
     Indication: HODGKIN^S DISEASE
     Route: 042
     Dates: start: 20140903, end: 20140919
  2. OXALIPLATIN HOSPIRA [Suspect]
     Active Substance: OXALIPLATIN
     Indication: HODGKIN^S DISEASE
     Route: 042
     Dates: start: 20140903, end: 20140919
  3. UROMITEXAN 400 MG/ 4ML [Suspect]
     Active Substance: MESNA
     Indication: HODGKIN^S DISEASE
     Route: 042
     Dates: start: 20140903, end: 20140919

REACTIONS (4)
  - Nausea [Recovered/Resolved]
  - Eye pruritus [Recovered/Resolved]
  - Paraesthesia [Recovered/Resolved]
  - Throat tightness [Recovered/Resolved]

NARRATIVE: CASE EVENT DATE: 20140919
